FAERS Safety Report 18362845 (Version 1)
Quarter: 2020Q4

REPORT INFORMATION
  Report Type: Report from Study
  Country: MX (occurrence: MX)
  Receive Date: 20201008
  Receipt Date: 20201008
  Transmission Date: 20210114
  Serious: Yes (Other)
  Sender: FDA-Public Use
  Company Number: NVSC2020MX269476

PATIENT
  Age: 74 Year
  Weight: 94 kg

DRUGS (1)
  1. ENTRESTO [Suspect]
     Active Substance: SACUBITRIL\VALSARTAN
     Indication: ARRHYTHMIA
     Dosage: 100 MG, BID (1 IN MORNING AND 1 AT NIGHT)
     Route: 065

REACTIONS (4)
  - Product use in unapproved indication [Unknown]
  - Hypoxia [Unknown]
  - Lung disorder [Unknown]
  - Feeling abnormal [Unknown]

NARRATIVE: CASE EVENT DATE: 20200904
